FAERS Safety Report 6715259-5 (Version None)
Quarter: 2010Q2

REPORT INFORMATION
  Report Type: 
  Country: None (occurrence: None)
  Receive Date: 20100507
  Receipt Date: 20100505
  Transmission Date: 20101027
  Serious: Yes (Other)
  Sender: FDA-Public Use
  Company Number: US-ALLERGAN-1005218US

PATIENT
  Age: 74 Year
  Sex: Female

DRUGS (4)
  1. BRIMONIDINE TARTRATE [Suspect]
     Indication: GLAUCOMA
     Route: 047
  2. ALENDRONATE [Concomitant]
  3. GLUCOSAMINE [Concomitant]
  4. HYDROCORTISONE [Concomitant]
     Route: 061

REACTIONS (1)
  - PSEUDOPHAEOCHROMOCYTOMA [None]
